FAERS Safety Report 24333143 (Version 2)
Quarter: 2024Q3

REPORT INFORMATION
  Report Type: Spontaneous
  Country: JP (occurrence: JP)
  Receive Date: 20240918
  Receipt Date: 20240920
  Transmission Date: 20241016
  Serious: No
  Sender: BAYER
  Company Number: JP-BAYER-2024A132142

PATIENT
  Sex: Female

DRUGS (1)
  1. MIRENA [Suspect]
     Active Substance: LEVONORGESTREL
     Indication: Product used for unknown indication
     Dosage: 20?G/DAY
     Route: 015

REACTIONS (3)
  - Device breakage [Unknown]
  - Device difficult to use [Unknown]
  - Complication of device removal [Unknown]
